FAERS Safety Report 16205896 (Version 9)
Quarter: 2022Q1

REPORT INFORMATION
  Report Type: Spontaneous
  Country: GB (occurrence: GB)
  Receive Date: 20190417
  Receipt Date: 20220322
  Transmission Date: 20220424
  Serious: Yes (Life-Threatening, Hospitalization, Disabling, Congenital Anomaly, Other)
  Sender: FDA-Public Use
  Company Number: GB-MHRA-ADR 22793410

PATIENT
  Age: 1 Year
  Sex: Female
  Weight: 2.267 kg

DRUGS (16)
  1. CODEINE PHOSPHATE [Suspect]
     Active Substance: CODEINE PHOSPHATE
     Indication: Back disorder
     Dosage: UNK
     Route: 064
  2. CODEINE PHOSPHATE [Suspect]
     Active Substance: CODEINE PHOSPHATE
     Indication: Pelvic pain
     Dosage: UNK, FOUR TIMES/DAY
     Route: 064
  3. CODEINE PHOSPHATE [Suspect]
     Active Substance: CODEINE PHOSPHATE
     Indication: Foetal exposure during pregnancy
  4. ACETAMINOPHEN [Suspect]
     Active Substance: ACETAMINOPHEN
     Indication: Pelvic pain
     Dosage: UNK, UPTO FOURTIMES A DAY
     Route: 064
  5. ACETAMINOPHEN [Suspect]
     Active Substance: ACETAMINOPHEN
     Indication: Foetal exposure during pregnancy
  6. ACETAMINOPHEN [Suspect]
     Active Substance: ACETAMINOPHEN
     Indication: Back disorder
  7. COCODAMOL [Suspect]
     Active Substance: ACETAMINOPHEN\CODEINE PHOSPHATE
     Indication: Back disorder
     Dosage: UNK, FOUR TIMES/DAY
     Route: 064
  8. COCODAMOL [Suspect]
     Active Substance: ACETAMINOPHEN\CODEINE PHOSPHATE
     Indication: Pelvic pain
  9. PERFALGAN [Suspect]
     Active Substance: ACETAMINOPHEN
     Indication: Back disorder
     Dosage: UNK, UP TO FOUR TIMES A DAY
     Route: 064
  10. PERFALGAN [Suspect]
     Active Substance: ACETAMINOPHEN
     Indication: Foetal exposure during pregnancy
     Dosage: STAGGERED PARACETAMOL OVERDOSE(UNINTENTIONAL) OVER WEEKS AND DAYS PRIOR TO DELIVERY
     Route: 064
  11. PERFALGAN [Suspect]
     Active Substance: ACETAMINOPHEN
     Indication: Pelvic pain
     Dosage: MATERNAL DOSE: UNKNOWN (UP TO 4 TIMES A DAY)
     Route: 064
  12. CEPHRADINE [Concomitant]
     Active Substance: CEPHRADINE
     Indication: Pyelonephritis
     Dosage: UNK
     Route: 064
  13. ENOXAPARIN [Concomitant]
     Active Substance: ENOXAPARIN
     Indication: Foetal exposure during pregnancy
     Dosage: UNK
     Route: 064
  14. FLUOXETINE [Concomitant]
     Active Substance: FLUOXETINE HYDROCHLORIDE
     Indication: Foetal exposure during pregnancy
     Dosage: UNK
     Route: 064
  15. METRONIDAZOLE [Concomitant]
     Active Substance: METRONIDAZOLE
     Indication: Pyelonephritis
     Dosage: UNK
     Route: 064
  16. MORPHINE HYDROCHLORIDE [Concomitant]
     Active Substance: MORPHINE HYDROCHLORIDE
     Indication: Product used for unknown indication
     Dosage: UNK
     Route: 064

REACTIONS (25)
  - Hepatotoxicity [Recovered/Resolved]
  - Hepatic function abnormal [Recovered/Resolved]
  - Gait inability [Unknown]
  - Aphasia [Unknown]
  - Developmental delay [Not Recovered/Not Resolved]
  - Jaundice neonatal [Recovered/Resolved]
  - Tremor [Unknown]
  - Malaise [Unknown]
  - Foetal arrhythmia [Recovered/Resolved]
  - Respiratory distress [Recovered/Resolved]
  - Incubator therapy [Unknown]
  - Heart rate irregular [Unknown]
  - Liver function test abnormal [Recovered/Resolved]
  - Foetal monitoring abnormal [Unknown]
  - Premature baby [Unknown]
  - Gingival discomfort [Unknown]
  - Low birth weight baby [Unknown]
  - Language disorder [Unknown]
  - Hepatic enzyme increased [Recovered/Resolved]
  - Drug withdrawal syndrome neonatal [Recovered/Resolved]
  - Dependence [Recovered/Resolved]
  - Drug dependence [Unknown]
  - Overdose [Unknown]
  - Incorrect product administration duration [Unknown]
  - Foetal exposure during pregnancy [Unknown]
